FAERS Safety Report 18214813 (Version 1)
Quarter: 2020Q3

REPORT INFORMATION
  Report Type: Spontaneous
  Country: SE (occurrence: SE)
  Receive Date: 20200831
  Receipt Date: 20200831
  Transmission Date: 20201103
  Serious: Yes (Other)
  Sender: FDA-Public Use
  Company Number: SE-ASTRAZENECA-2020SE92549

PATIENT
  Age: 91 Year
  Sex: Male

DRUGS (1)
  1. BRILIQUE [Suspect]
     Active Substance: TICAGRELOR
     Route: 048
     Dates: start: 2019

REACTIONS (2)
  - Skin reaction [Unknown]
  - Pruritus allergic [Unknown]

NARRATIVE: CASE EVENT DATE: 202001
